FAERS Safety Report 6120371-8 (Version None)
Quarter: 2009Q1

REPORT INFORMATION
  Report Type: 
  Country: None (occurrence: None)
  Receive Date: 20090317
  Receipt Date: 20090306
  Transmission Date: 20090719
  Serious: Yes (Other)
  Sender: FDA-Public Use
  Company Number: BE-BAXTER-2009BH003857

PATIENT
  Age: 36 Year
  Sex: Female

DRUGS (1)
  1. EXTRANEAL [Suspect]
     Indication: PERITONEAL DIALYSIS
     Route: 065
     Dates: start: 20051201

REACTIONS (1)
  - SCLEROSING ENCAPSULATING PERITONITIS [None]
